FAERS Safety Report 22227559 (Version 1)
Quarter: 2023Q2

REPORT INFORMATION
  Report Type: Spontaneous
  Country: HR (occurrence: HR)
  Receive Date: 20230419
  Receipt Date: 20230419
  Transmission Date: 20230721
  Serious: Yes (Other)
  Sender: FDA-Public Use
  Company Number: None

PATIENT

DRUGS (2)
  1. LAMICTAL [Suspect]
     Active Substance: LAMOTRIGINE
     Indication: Partial seizures
     Dosage: 50 MG, QD
     Route: 048
     Dates: start: 20170505, end: 202212
  2. LAMICTAL [Suspect]
     Active Substance: LAMOTRIGINE
     Dosage: 250 MG, QD (GRADUAL DOSE INCREASE)
     Route: 048
     Dates: start: 202212, end: 20230307

REACTIONS (3)
  - Trismus [Recovering/Resolving]
  - Nightmare [Recovering/Resolving]
  - Urticaria [Recovering/Resolving]

NARRATIVE: CASE EVENT DATE: 20230103
